FAERS Safety Report 9100907 (Version 1)
Quarter: 2013Q1

REPORT INFORMATION
  Report Type: Spontaneous
  Country: US (occurrence: US)
  Receive Date: 20130215
  Receipt Date: 20130215
  Transmission Date: 20140127
  Serious: Yes (Other)
  Sender: FDA-Public Use
  Company Number: US-RB-049503-13

PATIENT
  Age: 69 Year
  Sex: Male

DRUGS (2)
  1. MUCINEX D MAXIMUM STRENGTH (GUAIFENESIN) [Suspect]
     Indication: PRODUCT USED FOR UNKNOWN INDICATION
     Route: 048
     Dates: start: 20130127
  2. MUCINEX D MAXIMUM STRENGTH (PSEUDOEPHEDRINE) [Suspect]

REACTIONS (1)
  - Epistaxis [Recovered/Resolved]
